FAERS Safety Report 4611065-6 (Version None)
Quarter: 2005Q1

REPORT INFORMATION
  Report Type: 
  Country: None (occurrence: None)
  Receive Date: 20050315
  Receipt Date: 20050315
  Transmission Date: 20050727
  Serious: Yes (Other)
  Sender: FDA-Public Use
  Company Number: None

PATIENT
  Age: 65 Year
  Sex: Female
  Weight: 79.5 kg

DRUGS (10)
  1. ETOPOSIDE [Suspect]
     Indication: SMALL CELL LUNG CANCER STAGE UNSPECIFIED
     Dosage: 230 MG OVER 2 HOURS DAY 1 IV
     Route: 042
     Dates: start: 20050209
  2. CISPLATIN [Suspect]
     Indication: SMALL CELL LUNG CANCER STAGE UNSPECIFIED
     Dosage: 115 MG OVER 2 HOURS DAY 1 IV
     Route: 042
     Dates: start: 20050209
  3. LORTAB [Concomitant]
  4. SYNTHROID [Concomitant]
  5. ZYBAN [Concomitant]
  6. HYDROMORPHONE [Concomitant]
  7. BUSPAR [Concomitant]
  8. XANAX [Concomitant]
  9. DURAGESIC-100 [Concomitant]
  10. TRAZADONE [Concomitant]

REACTIONS (1)
  - WHITE BLOOD CELL COUNT ABNORMAL [None]
